FAERS Safety Report 9607676 (Version 1)
Quarter: 2013Q4

REPORT INFORMATION
  Report Type: Spontaneous
  Country: US (occurrence: US)
  Receive Date: 20131009
  Receipt Date: 20131009
  Transmission Date: 20140711
  Serious: No
  Sender: FDA-Public Use
  Company Number: US-SANOFI-AVENTIS-2013SA072085

PATIENT
  Sex: Female

DRUGS (2)
  1. ARAVA [Suspect]
     Route: 065
  2. METHOTREXATE [Suspect]
     Route: 065

REACTIONS (2)
  - Asthma [Unknown]
  - Blood immunoglobulin E decreased [Unknown]
